FAERS Safety Report 6306714-0 (Version None)
Quarter: 2009Q3

REPORT INFORMATION
  Report Type: 
  Country: None (occurrence: None)
  Receive Date: 20090812
  Receipt Date: 20090526
  Transmission Date: 20100115
  Serious: No
  Sender: FDA-Public Use
  Company Number: A0786133A

PATIENT
  Age: 58 Year
  Sex: Female

DRUGS (4)
  1. VERAMYST [Suspect]
     Indication: POSTNASAL DRIP
     Dosage: 2SPR PER DAY
     Route: 045
     Dates: start: 20090201
  2. NEXIUM [Concomitant]
  3. PREMPRO [Concomitant]
  4. VITAMINS [Concomitant]

REACTIONS (3)
  - NASAL CONGESTION [None]
  - POSTNASAL DRIP [None]
  - PRODUCT QUALITY ISSUE [None]
